FAERS Safety Report 9736297 (Version 1)
Quarter: 2013Q4

REPORT INFORMATION
  Report Type: Spontaneous
  Country: FR (occurrence: FR)
  Receive Date: 20131206
  Receipt Date: 20131206
  Transmission Date: 20140711
  Serious: Yes (Hospitalization)
  Sender: FDA-Public Use
  Company Number: FR-ACTAVIS-2013-22476

PATIENT
  Age: 75 Year
  Sex: Female

DRUGS (9)
  1. PANTOPRAZOLE [Suspect]
     Indication: PAIN
     Dosage: 40 MG, DAILY
     Route: 048
     Dates: start: 20131004, end: 20131004
  2. ALPRAZOLAM [Suspect]
     Indication: ANXIETY
     Dosage: 0.25 MG, DAILY
     Route: 048
     Dates: start: 20131004, end: 20131004
  3. BI PROFENID [Suspect]
     Indication: PAIN
     Dosage: 100 MG, EVERY TWO DAYS
     Route: 048
     Dates: start: 20131004, end: 20131005
  4. THIOCOLCHICOSIDE SANDOZ [Suspect]
     Indication: MUSCLE SPASMS
     Dosage: 4 MG, 2 DF EVERY 2 DAYS
     Route: 048
     Dates: start: 20131004, end: 20131005
  5. DAFALGAN [Suspect]
     Indication: PAIN
     Dosage: 500 MG, 2 DF EVERY 4 DAYS
     Route: 048
     Dates: start: 20131004, end: 20131005
  6. PERFALGAN [Suspect]
     Indication: PRODUCT USED FOR UNKNOWN INDICATION
     Dosage: UNK, UNK
     Route: 042
     Dates: start: 20131002, end: 20131003
  7. PROFENID [Suspect]
     Indication: PRODUCT USED FOR UNKNOWN INDICATION
     Dosage: UNK, UNK
     Route: 048
     Dates: start: 20131002, end: 20131003
  8. INEXIUM /01479302/ [Suspect]
     Indication: PRODUCT USED FOR UNKNOWN INDICATION
     Dosage: UNK, UNK
     Route: 048
     Dates: start: 20131002
  9. LOVENOX [Suspect]
     Indication: PRODUCT USED FOR UNKNOWN INDICATION
     Dosage: UNK
     Route: 042
     Dates: start: 20131003, end: 20131004

REACTIONS (7)
  - Hypotension [Recovered/Resolved]
  - Diarrhoea [Recovered/Resolved]
  - Malaise [Recovered/Resolved]
  - Abdominal pain [Recovered/Resolved]
  - Bradycardia [Recovered/Resolved]
  - Abdominal rigidity [Recovered/Resolved]
  - Hyperhidrosis [Recovered/Resolved]
